FAERS Safety Report 23286440 (Version 1)
Quarter: 2023Q4

REPORT INFORMATION
  Report Type: Spontaneous
  Country: US (occurrence: US)
  Receive Date: 20231212
  Receipt Date: 20231212
  Transmission Date: 20240110
  Serious: No
  Sender: FDA-Public Use
  Company Number: US-BAYER-2023A172449

PATIENT
  Age: 69 Year
  Sex: Female

DRUGS (1)
  1. CLIMARA PRO [Suspect]
     Active Substance: ESTRADIOL\LEVONORGESTREL
     Indication: Bone density abnormal
     Route: 062

REACTIONS (4)
  - Device use issue [None]
  - Off label use of device [None]
  - Wrong technique in device usage process [None]
  - Product adhesion issue [None]
